FAERS Safety Report 18043761 (Version 1)
Quarter: 2020Q3

REPORT INFORMATION
  Report Type: Spontaneous
  Country: US (occurrence: US)
  Receive Date: 20200720
  Receipt Date: 20200720
  Transmission Date: 20201103
  Serious: Yes (Life-Threatening, Hospitalization)
  Sender: FDA-Public Use
  Company Number: None

PATIENT
  Age: 78 Year
  Sex: Male

DRUGS (1)
  1. DOCETAXEL (DOCETAXEL 80MG/VIL INJ) [Suspect]
     Active Substance: DOCETAXEL
     Indication: PROSTATE CANCER METASTATIC
     Route: 042
     Dates: start: 20200404, end: 20200404

REACTIONS (12)
  - Chest pain [None]
  - Cough [None]
  - Pancytopenia [None]
  - Wheezing [None]
  - Febrile neutropenia [None]
  - Dizziness [None]
  - Haematuria [None]
  - Malaise [None]
  - Urinary tract infection [None]
  - Angina pectoris [None]
  - Sedation [None]
  - Dyspnoea [None]

NARRATIVE: CASE EVENT DATE: 20200404
